FAERS Safety Report 20679788 (Version 7)
Quarter: 2023Q4

REPORT INFORMATION
  Report Type: Spontaneous
  Country: US (occurrence: US)
  Receive Date: 20220406
  Receipt Date: 20231026
  Transmission Date: 20240109
  Serious: Yes (Other)
  Sender: FDA-Public Use
  Company Number: US-PFIZER INC-202101812994

PATIENT
  Age: 83 Year
  Sex: Female

DRUGS (1)
  1. IBRANCE [Suspect]
     Active Substance: PALBOCICLIB
     Dosage: 100 MG

REACTIONS (6)
  - Urinary tract infection [Unknown]
  - White blood cell count decreased [Unknown]
  - Insomnia [Unknown]
  - Blood glucose decreased [Unknown]
  - Thinking abnormal [Unknown]
  - Illness [Unknown]

NARRATIVE: CASE EVENT DATE: 20221215
